FAERS Safety Report 18846554 (Version 1)
Quarter: 2021Q1

REPORT INFORMATION
  Report Type: Spontaneous
  Country: US (occurrence: US)
  Receive Date: 20210204
  Receipt Date: 20210204
  Transmission Date: 20210419
  Serious: Yes (Hospitalization)
  Sender: FDA-Public Use
  Company Number: US-SAOL THERAPEUTICS-2020SAO00517

PATIENT
  Age: 39 Year
  Sex: Female
  Weight: 66.7 kg

DRUGS (6)
  1. LIORESAL [Suspect]
     Active Substance: BACLOFEN
     Indication: MUSCLE SPASTICITY
     Dosage: 1480 ?G, \DAY
     Route: 037
  2. LIORESAL [Suspect]
     Active Substance: BACLOFEN
     Indication: CEREBRAL PALSY
  3. TIZANIDINE. [Concomitant]
     Active Substance: TIZANIDINE
  4. TEGRETOL [Concomitant]
     Active Substance: CARBAMAZEPINE
  5. VIMPAT [Concomitant]
     Active Substance: LACOSAMIDE
  6. KEPPRA [Concomitant]
     Active Substance: LEVETIRACETAM

REACTIONS (8)
  - Device failure [Recovered/Resolved]
  - Anxiety [Recovered/Resolved]
  - Hyperhidrosis [Recovered/Resolved]
  - Product dose omission issue [Recovered/Resolved]
  - Drug withdrawal syndrome [Recovered/Resolved]
  - Ear pain [Unknown]
  - Device infusion issue [Unknown]
  - Tremor [Recovered/Resolved]

NARRATIVE: CASE EVENT DATE: 2020
